FAERS Safety Report 15154561 (Version 1)
Quarter: 2018Q3

REPORT INFORMATION
  Report Type: Report from Study
  Country: GB (occurrence: GB)
  Receive Date: 20180717
  Receipt Date: 20180717
  Transmission Date: 20181010
  Serious: Yes (Other)
  Sender: FDA-Public Use
  Company Number: PHHY2018GB046422

PATIENT
  Sex: Female

DRUGS (2)
  1. ERELZI [Suspect]
     Active Substance: ETANERCEPT-SZZS
     Dosage: 50 MG, QW, PRE FILLED PEN
     Route: 058
     Dates: start: 20180709
  2. ERELZI [Suspect]
     Active Substance: ETANERCEPT-SZZS
     Indication: RHEUMATOID ARTHRITIS
     Dosage: 50 MG, QW, PRE FILLED PEN
     Route: 058
     Dates: start: 20180514

REACTIONS (3)
  - Mobility decreased [Unknown]
  - Musculoskeletal pain [Unknown]
  - Bursitis [Unknown]
